FAERS Safety Report 4463845-8 (Version None)
Quarter: 2004Q4

REPORT INFORMATION
  Report Type: 
  Country: None (occurrence: None)
  Receive Date: 20041001
  Receipt Date: 20040903
  Transmission Date: 20050328
  Serious: Yes (Death, Other)
  Sender: FDA-Public Use
  Company Number: PHBS2004JP11791

PATIENT
  Age: 82 Year
  Sex: Male

DRUGS (4)
  1. AREDIA [Suspect]
     Indication: MULTIPLE MYELOMA
     Dosage: 45 MG/MONTH
     Route: 042
     Dates: start: 20040617
  2. DECADRON [Concomitant]
     Dosage: 10 MG/D FOR 4 DAYS
     Route: 065
  3. SOLU-MEDROL [Concomitant]
     Dosage: 1000 MG/D FOR 3 DAYS
     Dates: start: 20040821
  4. FLUMARIN [Concomitant]
     Dosage: 1 G/D
     Route: 065
     Dates: start: 20040830

REACTIONS (12)
  - BIOPSY KIDNEY ABNORMAL [None]
  - BLOOD CREATININE INCREASED [None]
  - BLOOD UREA INCREASED [None]
  - C-REACTIVE PROTEIN INCREASED [None]
  - DEPRESSED LEVEL OF CONSCIOUSNESS [None]
  - LUNG INFILTRATION [None]
  - NEPHROPATHY [None]
  - OXYGEN SATURATION DECREASED [None]
  - PNEUMOCOCCAL INFECTION [None]
  - PYREXIA [None]
  - RENAL FAILURE [None]
  - URINARY CASTS [None]
